FAERS Safety Report 18200972 (Version 1)
Quarter: 2020Q3

REPORT INFORMATION
  Report Type: Other
  Country: FR (occurrence: FR)
  Receive Date: 20200827
  Receipt Date: 20200827
  Transmission Date: 20201103
  Serious: Yes (Death, Hospitalization)
  Sender: FDA-Public Use
  Company Number: FR-CADILA HEALTHCARE LIMITED-FR-ZYDUS-040280

PATIENT

DRUGS (3)
  1. ALLOPURINOL. [Suspect]
     Active Substance: ALLOPURINOL
     Indication: HYPERURICAEMIA
     Dosage: 100 MILLIGRAM,(INTERVAL :1 DAYS)
     Route: 048
     Dates: start: 201906, end: 201907
  2. AMOXICILLINE [AMOXICILLIN SODIUM] [Concomitant]
     Active Substance: AMOXICILLIN SODIUM
     Indication: PRODUCT USED FOR UNKNOWN INDICATION
     Dosage: 2 GRAM,(INTERVAL :1 DAYS)
     Route: 065
     Dates: start: 20190809
  3. ACIDE CLAVULANIQUE [Concomitant]
     Active Substance: CLAVULANIC ACID
     Indication: PRODUCT USED FOR UNKNOWN INDICATION
     Dosage: 3 GRAM,(INTERVAL :1 DAYS)
     Route: 048
     Dates: start: 20190812

REACTIONS (7)
  - Thrombocytopenia [Fatal]
  - Rash maculo-papular [Fatal]
  - Hepatocellular injury [Fatal]
  - Pruritus [Fatal]
  - Eosinophilia [Fatal]
  - Mucosal inflammation [Fatal]
  - Pyrexia [Fatal]

NARRATIVE: CASE EVENT DATE: 201908
